FAERS Safety Report 18500785 (Version 2)
Quarter: 2021Q1

REPORT INFORMATION
  Report Type: Spontaneous
  Country: BE (occurrence: BE)
  Receive Date: 20201113
  Receipt Date: 20210304
  Transmission Date: 20210419
  Serious: Yes (Other)
  Sender: FDA-Public Use
  Company Number: BE-JNJFOC-20201101612

PATIENT
  Sex: Female
  Weight: 102 kg

DRUGS (1)
  1. STELARA [Suspect]
     Active Substance: USTEKINUMAB
     Indication: CROHN^S DISEASE
     Route: 058
     Dates: start: 20190709, end: 202003

REACTIONS (3)
  - Exposure during pregnancy [Recovered/Resolved]
  - Crohn^s disease [Not Recovered/Not Resolved]
  - Premature labour [Unknown]
